FAERS Safety Report 14860960 (Version 1)
Quarter: 2018Q2

REPORT INFORMATION
  Report Type: Spontaneous
  Country: GB (occurrence: GB)
  Receive Date: 20180508
  Receipt Date: 20180508
  Transmission Date: 20180711
  Serious: Yes (Death, Hospitalization, Other)
  Sender: FDA-Public Use
  Company Number: GB-ACCORD-066611

PATIENT
  Age: 63 Year
  Sex: Male

DRUGS (6)
  1. FLUOROURACIL. [Suspect]
     Active Substance: FLUOROURACIL
     Indication: PANCREATIC CARCINOMA METASTATIC
     Dosage: AT A 75% REDUCED DOSE
  2. FUROSEMIDE. [Concomitant]
     Active Substance: FUROSEMIDE
     Indication: OEDEMA PERIPHERAL
  3. OXALIPLATIN. [Suspect]
     Active Substance: OXALIPLATIN
     Indication: PANCREATIC CARCINOMA METASTATIC
     Dosage: AT A 75% REDUCED DOSE
  4. FOLINIC ACID [Suspect]
     Active Substance: LEUCOVORIN
     Indication: PANCREATIC CARCINOMA METASTATIC
     Dosage: AT A 75% REDUCED DOSE
  5. GEMCITABINE/GEMCITABINE HYDROCHLORIDE [Suspect]
     Active Substance: GEMCITABINE\GEMCITABINE HYDROCHLORIDE
     Indication: PANCREATIC CARCINOMA METASTATIC
     Dosage: NEAREST 38 MG AS 2,100 MG GIVEN ON DAY 1, 8, 15 ON A 28-DAY CYCLE, PLANNED FOR 6 CYCLES
  6. IRINOTECAN [Suspect]
     Active Substance: IRINOTECAN
     Indication: PANCREATIC CARCINOMA METASTATIC

REACTIONS (10)
  - Cachexia [Unknown]
  - Decreased appetite [Unknown]
  - Thrombocytopenia [Unknown]
  - Acute kidney injury [Recovering/Resolving]
  - Fatigue [Unknown]
  - Neuropathy peripheral [Unknown]
  - Off label use [Unknown]
  - Cardiac failure congestive [Recovering/Resolving]
  - Cardiomyopathy [Recovering/Resolving]
  - Anaemia [Unknown]
